FAERS Safety Report 10931801 (Version 2)
Quarter: 2015Q1

REPORT INFORMATION
  Report Type: Spontaneous
  Country: BR (occurrence: BR)
  Receive Date: 20150319
  Receipt Date: 20150330
  Transmission Date: 20150721
  Serious: Yes (Life-Threatening, Other)
  Sender: FDA-Public Use
  Company Number: PHHY2015BR033555

PATIENT
  Age: 43 Year
  Sex: Male

DRUGS (4)
  1. RITALIN LA [Suspect]
     Active Substance: METHYLPHENIDATE HYDROCHLORIDE
     Indication: NERVOUS SYSTEM DISORDER
     Dosage: 1 DF (CAPSULES), QHS
     Route: 048
     Dates: start: 20150316
  2. PAROXETINE [Suspect]
     Active Substance: PAROXETINE\PAROXETINE HYDROCHLORIDE
     Indication: DISTURBANCE IN ATTENTION
  3. RITALIN LA [Suspect]
     Active Substance: METHYLPHENIDATE HYDROCHLORIDE
     Indication: DISTURBANCE IN ATTENTION
  4. PAROXETINE [Suspect]
     Active Substance: PAROXETINE\PAROXETINE HYDROCHLORIDE
     Indication: NERVOUS SYSTEM DISORDER
     Dosage: 1 DF, ONCE/SINGLE (USED JUST FOR A DAY)
     Route: 048

REACTIONS (11)
  - Feeling abnormal [Recovered/Resolved]
  - Palpitations [Unknown]
  - Malaise [Not Recovered/Not Resolved]
  - Anxiety [Recovering/Resolving]
  - Product use issue [Unknown]
  - Panic disorder [Recovered/Resolved]
  - Nervous system disorder [Unknown]
  - Angina pectoris [Unknown]
  - Depression [Recovered/Resolved]
  - Blood pressure increased [Not Recovered/Not Resolved]
  - Dry mouth [Recovered/Resolved]

NARRATIVE: CASE EVENT DATE: 20150316
